FAERS Safety Report 20014259 (Version 3)
Quarter: 2023Q4

REPORT INFORMATION
  Report Type: Spontaneous
  Country: US (occurrence: US)
  Receive Date: 20211029
  Receipt Date: 20231229
  Transmission Date: 20240110
  Serious: No
  Sender: FDA-Public Use
  Company Number: US-PFIZER INC-202101076113

PATIENT
  Age: 54 Year
  Sex: Female

DRUGS (5)
  1. IBRANCE [Suspect]
     Active Substance: PALBOCICLIB
     Indication: Breast cancer female
     Dosage: 75 MG
     Dates: start: 20210329
  2. IBRANCE [Suspect]
     Active Substance: PALBOCICLIB
     Dosage: 75 MG, CYCLIC (75 MG BY MOUTH DAILY FOR 14 DAYS ON AND 14 DAYS OFF)
     Route: 048
     Dates: start: 202004
  3. IBRANCE [Suspect]
     Active Substance: PALBOCICLIB
     Dosage: 75 MG, CYCLIC (OFF LABEL CYCLE 14 ON/14 OFF DUE TO PATIENT INTOLERANCE)
     Dates: start: 20200417
  4. IBRANCE [Suspect]
     Active Substance: PALBOCICLIB
     Dosage: 75 MG
     Dates: start: 20201001
  5. ANASTROZOLE [Concomitant]
     Active Substance: ANASTROZOLE
     Dosage: UNK, DAILY

REACTIONS (5)
  - Off label use [Unknown]
  - Product dose omission issue [Unknown]
  - Drug intolerance [Unknown]
  - Blood test abnormal [Unknown]
  - White blood cell count decreased [Unknown]
